FAERS Safety Report 5577422-9 (Version None)
Quarter: 2007Q4

REPORT INFORMATION
  Report Type: 
  Country: None (occurrence: None)
  Receive Date: 20071228
  Receipt Date: 20071217
  Transmission Date: 20080405
  Serious: Yes (Other)
  Sender: FDA-Public Use
  Company Number: US-PFIZER INC-2007107348

PATIENT
  Sex: Male
  Weight: 90.7 kg

DRUGS (8)
  1. CHANTIX [Suspect]
     Indication: EX-SMOKER
  2. CLINDAMYCIN HYDROCHLORIDE [Suspect]
     Indication: INFECTION
  3. METHYLPREDNISOLONE 16MG TAB [Suspect]
     Indication: INFECTION
  4. TEMAZEPAM [Suspect]
  5. TEMAZEPAM [Suspect]
     Dates: start: 20071118, end: 20071119
  6. AMLODIPINE BESYLATE/VALSARTAN [Concomitant]
  7. OXYCODONE HCL [Concomitant]
  8. HYDROCODONE BITARTRATE [Concomitant]

REACTIONS (7)
  - ANOREXIA [None]
  - DISSOCIATION [None]
  - DRUG INEFFECTIVE [None]
  - HYPERTENSION [None]
  - INFECTION [None]
  - PAIN [None]
  - WEIGHT DECREASED [None]
